FAERS Safety Report 5720072-1 (Version None)
Quarter: 2008Q2

REPORT INFORMATION
  Report Type: 
  Country: None (occurrence: None)
  Receive Date: 20080423
  Receipt Date: 20070926
  Transmission Date: 20081010
  Serious: Yes (Death, Hospitalization)
  Sender: FDA-Public Use
  Company Number: 246840

PATIENT
  Age: 80 Year
  Sex: Male
  Weight: 75 kg

DRUGS (4)
  1. AVASTIN [Suspect]
     Indication: RENAL CELL CARCINOMA
     Dosage: 740 MG, Q2W, INTRAVENOUS
     Route: 042
     Dates: start: 20070223
  2. TORISEL [Concomitant]
  3. DIPHENHYDRAMINE (DIPHENHYDRAMINE NOS) [Concomitant]
  4. RADIOTHERAPY (RADIATION THERAPY) [Concomitant]

REACTIONS (1)
  - GASTROINTESTINAL PERFORATION [None]
